FAERS Safety Report 23793200 (Version 2)
Quarter: 2024Q2

REPORT INFORMATION
  Report Type: Other
  Country: US (occurrence: None)
  Receive Date: 20240429
  Receipt Date: 20240508
  Transmission Date: 20240715
  Serious: Yes (Hospitalization, Other)
  Sender: FDA-Public Use
  Company Number: US-ROCHE-3530371

PATIENT
  Age: 62 Year
  Sex: Female
  Weight: 86.26 kg

DRUGS (23)
  1. ACTEMRA [Suspect]
     Active Substance: TOCILIZUMAB
     Indication: Rheumatoid arthritis
     Route: 058
     Dates: start: 2019
  2. ACTEMRA [Suspect]
     Active Substance: TOCILIZUMAB
     Indication: Rheumatoid arthritis
     Route: 058
     Dates: start: 20230512, end: 20230512
  3. ACTEMRA [Suspect]
     Active Substance: TOCILIZUMAB
     Indication: Chronic kidney disease
  4. ACTEMRA [Suspect]
     Active Substance: TOCILIZUMAB
     Indication: Pain
  5. AMLODIPINE [Concomitant]
     Active Substance: AMLODIPINE BESYLATE
     Indication: Hypertension
  6. DULOXETINE [Concomitant]
     Active Substance: DULOXETINE
     Indication: Depression
     Dates: start: 2023
  7. LASIX [Concomitant]
     Active Substance: FUROSEMIDE
     Indication: Nephropathy
     Dates: start: 2023
  8. POTASSIUM [Concomitant]
     Active Substance: POTASSIUM
     Indication: Nephropathy
     Dates: start: 2023
  9. BUDESONIDE [Concomitant]
     Active Substance: BUDESONIDE
     Indication: Diarrhoea
     Dates: start: 202308
  10. BUDESONIDE [Concomitant]
     Active Substance: BUDESONIDE
     Indication: Colitis microscopic
  11. GABAPENTIN [Concomitant]
     Active Substance: GABAPENTIN
     Indication: Neuralgia
     Dosage: TAKES 200MG TO 300MG PER DAY
     Dates: start: 2023
  12. GABAPENTIN [Concomitant]
     Active Substance: GABAPENTIN
     Dates: start: 2023, end: 2023
  13. GABAPENTIN [Concomitant]
     Active Substance: GABAPENTIN
     Dates: start: 2023, end: 2023
  14. GABAPENTIN [Concomitant]
     Active Substance: GABAPENTIN
     Dates: end: 2023
  15. TYLENOL ARTHRITIS PAIN [Concomitant]
     Active Substance: ACETAMINOPHEN
     Indication: Pain
  16. VITAMIN D3 [Concomitant]
     Active Substance: CHOLECALCIFEROL
  17. FISH OIL [Concomitant]
     Active Substance: FISH OIL
  18. CARAFATE [Concomitant]
     Active Substance: SUCRALFATE
     Indication: Diarrhoea
  19. CARAFATE [Concomitant]
     Active Substance: SUCRALFATE
     Indication: Abdominal pain upper
  20. MIRALAX [Concomitant]
     Active Substance: POLYETHYLENE GLYCOL 3350
  21. PREDNISONE [Concomitant]
     Active Substance: PREDNISONE
  22. MINOCYCLINE [Concomitant]
     Active Substance: MINOCYCLINE HYDROCHLORIDE
  23. GABAPENTIN [Concomitant]
     Active Substance: GABAPENTIN

REACTIONS (24)
  - Localised infection [Recovered/Resolved]
  - COVID-19 [Recovered/Resolved]
  - Dehydration [Recovered/Resolved]
  - Hypotension [Recovered/Resolved]
  - Skin ulcer [Recovered/Resolved]
  - Osteomyelitis [Recovered/Resolved]
  - Foot fracture [Unknown]
  - Pneumonia [Recovered/Resolved]
  - Fall [Unknown]
  - Back pain [Recovering/Resolving]
  - Pain in extremity [Recovering/Resolving]
  - Defaecation disorder [Recovered/Resolved]
  - Muscle swelling [Recovered/Resolved]
  - Injection site haematoma [Recovering/Resolving]
  - Diarrhoea [Recovered/Resolved]
  - Weight decreased [Recovered/Resolved]
  - Ageusia [Recovering/Resolving]
  - Anosmia [Recovering/Resolving]
  - Infection [Recovered/Resolved]
  - Loss of consciousness [Recovered/Resolved]
  - Hyperkeratosis [Not Recovered/Not Resolved]
  - Abdominal pain upper [Recovered/Resolved]
  - Gastrointestinal pain [Recovered/Resolved]
  - Needle issue [Unknown]

NARRATIVE: CASE EVENT DATE: 20221201
